FAERS Safety Report 5061187-3 (Version None)
Quarter: 2006Q3

REPORT INFORMATION
  Report Type: 
  Country: None (occurrence: None)
  Receive Date: 20060719
  Receipt Date: 20060719
  Transmission Date: 20061208
  Serious: Yes (Hospitalization)
  Sender: FDA-Public Use
  Company Number: None

PATIENT
  Age: 83 Year
  Sex: Male

DRUGS (1)
  1. METOLAZONE [Suspect]
     Indication: FLUID RETENTION
     Dosage: 25 MG PO QD
     Route: 048
     Dates: start: 20060607, end: 20060613

REACTIONS (4)
  - ASTHENIA [None]
  - DEHYDRATION [None]
  - POLYURIA [None]
  - RENAL FAILURE ACUTE [None]
